FAERS Safety Report 24355436 (Version 1)
Quarter: 2024Q3

REPORT INFORMATION
  Report Type: Spontaneous
  Country: JP (occurrence: JP)
  Receive Date: 20240924
  Receipt Date: 20240924
  Transmission Date: 20241017
  Serious: Yes (Death)
  Sender: SANOFI AVENTIS
  Company Number: JP-SAKK-2024SA271900AA

PATIENT
  Age: 50 Year
  Sex: Male

DRUGS (1)
  1. KEVZARA [Suspect]
     Active Substance: SARILUMAB
     Indication: Rheumatoid arthritis
     Dosage: UNK
     Route: 058
     Dates: start: 202309

REACTIONS (3)
  - Rheumatoid vasculitis [Fatal]
  - Vasculitis [Fatal]
  - General physical health deterioration [Fatal]
